FAERS Safety Report 4616636-9 (Version None)
Quarter: 2005Q1

REPORT INFORMATION
  Report Type: 
  Country: None (occurrence: None)
  Receive Date: 20050318
  Receipt Date: 20050304
  Transmission Date: 20050727
  Serious: Yes (Other)
  Sender: FDA-Public Use
  Company Number: 2005BI000322

PATIENT
  Age: 33 Year
  Sex: Female

DRUGS (6)
  1. AVONEX [Suspect]
     Indication: MULTIPLE SCLEROSIS
     Dosage: 30 U G; QW; IM
     Route: 030
     Dates: start: 20031215
  2. AVONEX [Suspect]
     Indication: MULTIPLE SCLEROSIS
     Dosage: 30 UG; QW; IM
     Route: 030
  3. METHYLPREDNISOLONE [Concomitant]
  4. PREDNISONE [Concomitant]
  5. METHOTREXATE [Concomitant]
  6. FOLIC ACID [Concomitant]

REACTIONS (2)
  - OPTIC NEURITIS [None]
  - VISUAL ACUITY REDUCED [None]
